FAERS Safety Report 4547064-2 (Version None)
Quarter: 2005Q1

REPORT INFORMATION
  Report Type: 
  Country: None (occurrence: None)
  Receive Date: 20050107
  Receipt Date: 20030317
  Transmission Date: 20050727
  Serious: Yes (Life-Threatening, Other)
  Sender: FDA-Public Use
  Company Number: PHFR2003GB01339

PATIENT
  Age: 14 Year
  Sex: Male

DRUGS (4)
  1. CARBAMAZEPINE [Suspect]
     Indication: EPILEPSY
     Dosage: 300 MG, BID
     Route: 048
     Dates: end: 20020315
  2. ATIVAN [Suspect]
     Dosage: 0.3 - 0.5MG/KG
     Route: 042
     Dates: start: 20020101, end: 20020101
  3. LAMOTRIGINE [Suspect]
     Indication: EPILEPSY
     Dosage: 300MG/OM
     Route: 048
     Dates: start: 20010101
  4. DIAZEPAM [Concomitant]
     Indication: EPILEPSY
     Dosage: PRN
     Route: 054

REACTIONS (8)
  - ABNORMAL CLOTTING FACTOR [None]
  - COAGULATION TIME PROLONGED [None]
  - COMA [None]
  - HEPATOTOXICITY [None]
  - HYPOXIA [None]
  - LIVER FUNCTION TEST ABNORMAL [None]
  - MEDICATION ERROR [None]
  - MULTI-ORGAN FAILURE [None]
